FAERS Safety Report 9870452 (Version 1)
Quarter: 2014Q1

REPORT INFORMATION
  Report Type: Spontaneous
  Country: GB (occurrence: GB)
  Receive Date: 20140205
  Receipt Date: 20140205
  Transmission Date: 20141002
  Serious: Yes (Death, Life-Threatening, Hospitalization)
  Sender: FDA-Public Use
  Company Number: GB-TEVA-460391ISR

PATIENT
  Age: 85 Year
  Sex: Female

DRUGS (12)
  1. TRIMETHOPRIM [Suspect]
     Indication: URINARY TRACT INFECTION
     Dosage: 400 MILLIGRAM DAILY;
     Route: 048
     Dates: start: 20140108
  2. WARFARIN [Suspect]
     Indication: ATRIAL FIBRILLATION
     Route: 048
  3. FUROSEMIDE [Concomitant]
     Dosage: 40 MG IN THE MORNING.
     Route: 048
  4. SPIRONOLACTONE [Concomitant]
     Dosage: 50 MG IN THE MORNING.
     Route: 048
  5. PARACETAMOL [Concomitant]
     Dosage: 500MG TABLETS.
     Route: 048
  6. LACTULOSE [Concomitant]
     Dosage: 3.1-3.7G/5ML.
     Route: 048
  7. OMEPRAZOLE [Concomitant]
     Indication: HYPERCHLORHYDRIA
     Dosage: 20 MG IN THE MORNING.
     Route: 048
  8. ATENOLOL [Concomitant]
     Dosage: 25 MILLIGRAM DAILY;
     Route: 048
  9. LEVOTHYROXINE SODIUM [Concomitant]
     Dosage: 50 MICROGRAM TAKEN IN THE MORNING.
     Route: 048
  10. BUTRANS [Concomitant]
     Dosage: 10MICROGRAMS/HOUR
     Route: 062
  11. IPRATROPIUM BROMIDE [Concomitant]
     Dosage: 21MICROGRAMS/DOSE. ONE PUFF IN EACH NOSTRIL TWO TO THREE TIMES A DAY.
     Route: 045
  12. FORTISIP [Concomitant]
     Dosage: 1 BOTTLE COMPACT PROTEIN LIQUID TWICE A DAY.
     Route: 048

REACTIONS (1)
  - Haemorrhage intracranial [Fatal]
